FAERS Safety Report 8605830 (Version 3)
Quarter: 2013Q3

REPORT INFORMATION
  Report Type: Report from Study
  Country: JP (occurrence: JP)
  Receive Date: 20120608
  Receipt Date: 20130920
  Transmission Date: 20140515
  Serious: Yes (Other)
  Sender: FDA-Public Use
  Company Number: JP-VERTEX PHARMACEUTICALS INC.-AE-2012-008162

PATIENT
  Age: 70 Year
  Sex: Female

DRUGS (12)
  1. VX-950 (TELAPREVIR) [Suspect]
     Indication: CHRONIC HEPATITIS C
     Dosage: 1500 MG, QD
     Route: 048
     Dates: start: 20120404, end: 20120406
  2. REBETOL [Suspect]
     Indication: CHRONIC HEPATITIS C
     Dosage: 400 MG, QD
     Route: 048
     Dates: start: 20120404, end: 20120406
  3. REBETOL [Suspect]
     Dosage: 400 MG, QD
     Route: 048
     Dates: start: 20120409
  4. PEGINTRON [Suspect]
     Indication: CHRONIC HEPATITIS C
     Dosage: 1.5 ?G/KG, QW
     Route: 058
     Dates: start: 20120404, end: 20120404
  5. PEGINTRON [Suspect]
     Dosage: 0.75 ?G/KG, QW
     Route: 058
     Dates: start: 20120411
  6. URSO [Concomitant]
     Dosage: 600 MG, QD
     Route: 048
  7. SELBEX [Concomitant]
     Dosage: 100 MG, QD
     Route: 048
  8. LOXONIN [Concomitant]
     Dosage: 120 MG, QD
     Route: 048
     Dates: end: 20120516
  9. ISODINE GARGLE [Concomitant]
     Dosage: UNK, PRN
     Route: 051
     Dates: start: 20120412, end: 20120419
  10. MS ONSHIPPU [Concomitant]
     Dosage: 1 DF, QD
     Route: 061
     Dates: start: 20120417, end: 20120419
  11. PURSENNID [Concomitant]
     Dosage: 12 MG, QD
     Route: 048
     Dates: start: 20120418, end: 20120516
  12. ASPARA K [Concomitant]
     Dosage: 900 MG, QD
     Route: 048
     Dates: end: 20120516

REACTIONS (1)
  - Agranulocytosis [Recovered/Resolved]
